FAERS Safety Report 13669245 (Version 3)
Quarter: 2019Q4

REPORT INFORMATION
  Report Type: Spontaneous
  Country: US (occurrence: US)
  Receive Date: 20170620
  Receipt Date: 20191028
  Transmission Date: 20200122
  Serious: Yes (Other)
  Sender: FDA-Public Use
  Company Number: US-PFIZER INC-2017268486

PATIENT
  Age: 63 Year
  Sex: Male

DRUGS (22)
  1. LEVITRA [Concomitant]
     Active Substance: VARDENAFIL HYDROCHLORIDE
     Indication: ERECTILE DYSFUNCTION
     Dosage: 20 MG, (FEW TIMES A MONTH)
     Dates: start: 20110118, end: 201103
  2. BENZONATATE. [Concomitant]
     Active Substance: BENZONATATE
     Indication: BRONCHITIS
     Dosage: UNK
     Dates: start: 20140905, end: 20140915
  3. VENTOLIN HFA [Concomitant]
     Active Substance: ALBUTEROL SULFATE
     Indication: BRONCHITIS
     Dosage: UNK
     Dates: start: 20150309, end: 20150319
  4. AMOXICILLIN. [Concomitant]
     Active Substance: AMOXICILLIN
     Indication: EAR PAIN
     Dosage: UNK
     Dates: start: 20140718, end: 20150319
  5. VIAGRA [Suspect]
     Active Substance: SILDENAFIL CITRATE
     Indication: ERECTILE DYSFUNCTION
     Dosage: 100 MG (3 TO 5 TIMES A WEEK)
     Route: 048
     Dates: start: 2009, end: 201111
  6. VIAGRA [Suspect]
     Active Substance: SILDENAFIL CITRATE
     Dosage: UNK, PATIENT RECEIVED SAMPLES
     Route: 048
     Dates: start: 2009
  7. VIAGRA [Suspect]
     Active Substance: SILDENAFIL CITRATE
     Dosage: UNK,  PATIENT RECEIVED SAMPLES
     Route: 048
     Dates: start: 2011
  8. VIAGRA [Suspect]
     Active Substance: SILDENAFIL CITRATE
     Dosage: UNK, PATIENT RECEIVED SAMPLES
     Route: 048
     Dates: start: 2013
  9. AMLODIPINE BESYLATE. [Concomitant]
     Active Substance: AMLODIPINE BESYLATE
     Indication: CHRONIC OBSTRUCTIVE PULMONARY DISEASE
     Dosage: UNK
     Dates: start: 20140225, end: 20140322
  10. ANTIPYRINE AND BENZOCAIN OTIC SO [Concomitant]
     Indication: EAR PAIN
     Dosage: UNK
     Dates: start: 20140718, end: 20140728
  11. VIAGRA [Suspect]
     Active Substance: SILDENAFIL CITRATE
     Dosage: UNK
     Route: 048
     Dates: start: 20100101, end: 20150812
  12. VIAGRA [Suspect]
     Active Substance: SILDENAFIL CITRATE
     Dosage: 100 MG (3 TO 5 TIMES A WEEK)
     Route: 048
     Dates: start: 20110518, end: 201107
  13. CIPROFLOXACIN. [Concomitant]
     Active Substance: CIPROFLOXACIN
     Indication: BRONCHITIS
     Dosage: UNK
     Dates: start: 20150706, end: 20150716
  14. TRAMADOL HCL [Concomitant]
     Active Substance: TRAMADOL HYDROCHLORIDE
     Indication: BRONCHITIS
     Dosage: UNK
     Dates: start: 20150309, end: 20150319
  15. VIAGRA [Suspect]
     Active Substance: SILDENAFIL CITRATE
     Dosage: 100 MG (3 TO 5 TIMES A WEEK)
     Route: 048
     Dates: start: 20100216, end: 20110510
  16. CEFADROXIL. [Concomitant]
     Active Substance: CEFADROXIL
     Indication: BRONCHITIS
     Dosage: UNK
     Dates: start: 20150501, end: 20150510
  17. VIAGRA [Suspect]
     Active Substance: SILDENAFIL CITRATE
     Dosage: UNK, PATIENT RECEIVED SAMPLES
     Route: 048
     Dates: start: 2012
  18. VIAGRA [Suspect]
     Active Substance: SILDENAFIL CITRATE
     Dosage: 100 MG (3 TO 5 TIMES A WEEK)
     Route: 048
     Dates: start: 20111122, end: 201412
  19. ATROVENT HFA [Concomitant]
     Active Substance: IPRATROPIUM BROMIDE
     Indication: CHRONIC OBSTRUCTIVE PULMONARY DISEASE
     Dosage: UNK
     Dates: start: 20140225, end: 20150319
  20. PROAIR HFA [Concomitant]
     Active Substance: ALBUTEROL SULFATE
     Indication: CHRONIC OBSTRUCTIVE PULMONARY DISEASE
     Dosage: UNK
     Dates: start: 20140225, end: 20140228
  21. HYDROCODONE BITARTRATE AND ACETAMINOPHEN [Concomitant]
     Active Substance: ACETAMINOPHEN\HYDROCODONE BITARTRATE
     Indication: EAR PAIN
     Dosage: UNK
     Dates: start: 20140718, end: 20140728
  22. CHERATUSSIN [Concomitant]
     Active Substance: AMMONIUM CHLORIDE\DEXTROMETHORPHAN\SODIUM CITRATE
     Indication: BRONCHITIS
     Dosage: UNK
     Dates: start: 20150309, end: 20150319

REACTIONS (1)
  - Malignant melanoma stage IV [Unknown]

NARRATIVE: CASE EVENT DATE: 20150706
